FAERS Safety Report 22191556 (Version 1)
Quarter: 2023Q2

REPORT INFORMATION
  Report Type: Spontaneous
  Country: GB (occurrence: GB)
  Receive Date: 20230410
  Receipt Date: 20230410
  Transmission Date: 20230722
  Serious: Yes (Other)
  Sender: FDA-Public Use
  Company Number: None

PATIENT
  Age: 69 Year
  Sex: Female
  Weight: 69.6 kg

DRUGS (3)
  1. DOXAZOSIN [Suspect]
     Active Substance: DOXAZOSIN MESYLATE
     Indication: Blood pressure abnormal
     Dosage: 1 MILLIGRAM, QD (ONE TO BE TAKEN EACH DAY)
     Route: 065
     Dates: start: 20230331, end: 20230404
  2. DICLOFENAC DIETHYLAMINE [Concomitant]
     Active Substance: DICLOFENAC DIETHYLAMINE
     Dosage: 200 GRAM (APPLY TWICE A DAY)
     Route: 065
     Dates: start: 20230313
  3. LACTULOSE [Concomitant]
     Active Substance: LACTULOSE
     Indication: Constipation
     Dosage: 15 MILLILITER, BID 500 ML (THREE 5ML SPOONFULS TO BE TAKEN TWICE A DAY (FOR CONSTIPATION))
     Route: 065
     Dates: start: 20230111, end: 20230223

REACTIONS (1)
  - Gingival bleeding [Recovered/Resolved]

NARRATIVE: CASE EVENT DATE: 20230331
